FAERS Safety Report 9428265 (Version 1)
Quarter: 2013Q3

REPORT INFORMATION
  Report Type: Spontaneous
  Country: US (occurrence: US)
  Receive Date: 20130730
  Receipt Date: 20130730
  Transmission Date: 20140515
  Serious: Yes (Other)
  Sender: FDA-Public Use
  Company Number: US-BAYER-2013-089286

PATIENT
  Sex: Female

DRUGS (1)
  1. MIRENA [Suspect]
     Indication: CONTRACEPTION
     Dosage: 20 MCG/24HR, CONT
     Route: 015
     Dates: start: 20120402, end: 2012

REACTIONS (7)
  - Pregnancy with contraceptive device [None]
  - Abortion spontaneous [None]
  - Device expulsion [None]
  - Abdominal distension [None]
  - Menorrhagia [None]
  - Drug ineffective [None]
  - Uterine cervical laceration [None]
